FAERS Safety Report 14984267 (Version 1)
Quarter: 2018Q2

REPORT INFORMATION
  Report Type: Spontaneous
  Country: IN (occurrence: IN)
  Receive Date: 20180607
  Receipt Date: 20180607
  Transmission Date: 20180711
  Serious: No
  Sender: FDA-Public Use
  Company Number: IN-JAZZ-2018-IN-003036

PATIENT
  Age: 6 Month
  Sex: Male

DRUGS (1)
  1. DEFIBROTIDE (NPB) [Suspect]
     Active Substance: DEFIBROTIDE SODIUM
     Indication: VENOOCCLUSIVE LIVER DISEASE
     Dosage: 6.25 MG/KG, QID

REACTIONS (1)
  - Incorrect drug administration duration [Unknown]
